FAERS Safety Report 6436428-8 (Version None)
Quarter: 2009Q4

REPORT INFORMATION
  Report Type: 
  Country: None (occurrence: None)
  Receive Date: 20091111
  Receipt Date: 20091107
  Transmission Date: 20100525
  Serious: Yes (Hospitalization)
  Sender: FDA-Public Use
  Company Number: PE-BRISTOL-MYERS SQUIBB COMPANY-14847842

PATIENT
  Age: 59 Year
  Sex: Female

DRUGS (1)
  1. IXEMPRA KIT [Suspect]
     Route: 048

REACTIONS (4)
  - HYPERNATRAEMIA [None]
  - MUCOSAL INFLAMMATION [None]
  - PANCYTOPENIA [None]
  - POLYNEUROPATHY [None]
